FAERS Safety Report 23459627 (Version 6)
Quarter: 2024Q2

REPORT INFORMATION
  Report Type: Spontaneous
  Country: US (occurrence: US)
  Receive Date: 20240131
  Receipt Date: 20240517
  Transmission Date: 20240716
  Serious: No
  Sender: FDA-Public Use
  Company Number: US-GLAXOSMITHKLINE-US2024AMR011485

PATIENT
  Age: 61 Year
  Sex: Female

DRUGS (1)
  1. ZEJULA [Suspect]
     Active Substance: NIRAPARIB
     Indication: Ovarian cancer
     Dosage: 200 MG, QD
     Dates: start: 20230706

REACTIONS (4)
  - Insomnia [Recovering/Resolving]
  - Constipation [Not Recovered/Not Resolved]
  - Gastrointestinal pain [Unknown]
  - Feeling jittery [Unknown]

NARRATIVE: CASE EVENT DATE: 20240101
